FAERS Safety Report 8268995-6 (Version None)
Quarter: 2012Q2

REPORT INFORMATION
  Report Type: 
  Country: None (occurrence: None)
  Receive Date: 20120409
  Receipt Date: 20120402
  Transmission Date: 20120825
  Serious: Yes (Other)
  Sender: FDA-Public Use
  Company Number: US-JNJFOC-20120401218

PATIENT
  Age: 72 Year
  Sex: Male
  Weight: 94.35 kg

DRUGS (2)
  1. BENAZEPRIL HYDROCHLORIDE [Concomitant]
     Indication: BLOOD PRESSURE
     Route: 048
  2. XARELTO [Suspect]
     Indication: ATRIAL FIBRILLATION
     Route: 048
     Dates: start: 20120201

REACTIONS (3)
  - ABDOMINAL DISCOMFORT [None]
  - VISION BLURRED [None]
  - NAUSEA [None]
